FAERS Safety Report 18773155 (Version 1)
Quarter: 2021Q1

REPORT INFORMATION
  Report Type: Spontaneous
  Country: US (occurrence: US)
  Receive Date: 20210121
  Receipt Date: 20210121
  Transmission Date: 20210419
  Serious: Yes (Other)
  Sender: FDA-Public Use
  Company Number: None

PATIENT
  Age: 70 Year
  Sex: Female

DRUGS (1)
  1. ALBUTEROL SULF HFA 90MCG AER 8.5GM (GENERIC FOR PROAIR) [Suspect]
     Active Substance: ALBUTEROL SULFATE
     Dosage: ?          OTHER FREQUENCY:EVERY 4 HOURS PRN;?
     Route: 048

REACTIONS (2)
  - Dysgeusia [None]
  - Nausea [None]

NARRATIVE: CASE EVENT DATE: 20210118
